FAERS Safety Report 6241143-X (Version None)
Quarter: 2009Q2

REPORT INFORMATION
  Report Type: 
  Country: None (occurrence: None)
  Receive Date: 20090623
  Receipt Date: 20090618
  Transmission Date: 20091009
  Serious: Yes (Death, Other)
  Sender: FDA-Public Use
  Company Number: US-BRISTOL-MYERS SQUIBB COMPANY-14671135

PATIENT
  Age: 79 Year
  Sex: Male

DRUGS (2)
  1. SPRYCEL [Suspect]
     Indication: CHRONIC MYELOID LEUKAEMIA
     Dosage: INITIATED AT 70MG BID, INCREASED TO 100MGQD,OCT06; REDUCED TO 20MG QOD
     Dates: start: 20060701, end: 20090601
  2. GLEEVEC [Concomitant]
     Indication: CHRONIC MYELOID LEUKAEMIA
     Dates: start: 20030601

REACTIONS (3)
  - FULL BLOOD COUNT DECREASED [None]
  - MALIGNANT NEOPLASM PROGRESSION [None]
  - MYELOFIBROSIS [None]
